FAERS Safety Report 4408022-1 (Version None)
Quarter: 2004Q3

REPORT INFORMATION
  Report Type: 
  Country: None (occurrence: None)
  Receive Date: 20040721
  Receipt Date: 20040705
  Transmission Date: 20050211
  Serious: Yes (Hospitalization)
  Sender: FDA-Public Use
  Company Number: 2004SE03178

PATIENT
  Age: 70 Year
  Sex: Male

DRUGS (8)
  1. SYMBICORT TURBUHALER [Suspect]
     Indication: ASTHMA
     Dates: start: 20020101, end: 20040531
  2. SYMBICORT TURBUHALER [Suspect]
     Indication: ASTHMA
     Dosage: 120 MCG X 2
     Dates: start: 20040601
  3. TRIATEC COMP [Concomitant]
  4. FUROSEMIDE [Concomitant]
  5. KALEORID [Concomitant]
  6. NITROGLYCERIN [Concomitant]
  7. BRICANYL [Concomitant]
  8. MAGNYL [Concomitant]

REACTIONS (4)
  - ACUTE CORONARY SYNDROME [None]
  - ASTHMA [None]
  - DEVICE FAILURE [None]
  - DRUG INEFFECTIVE [None]
